FAERS Safety Report 17230135 (Version 1)
Quarter: 2020Q1

REPORT INFORMATION
  Report Type: Report from Study
  Country: GB (occurrence: GB)
  Receive Date: 20200103
  Receipt Date: 20200103
  Transmission Date: 20200409
  Serious: Yes (Hospitalization)
  Sender: FDA-Public Use
  Company Number: GB-BRISTOL-MYERS SQUIBB COMPANY-BMS-2019-100116

PATIENT
  Age: 60 Year
  Sex: Male
  Weight: 94.05 kg

DRUGS (2)
  1. TEMOZOLOMIDE. [Suspect]
     Active Substance: TEMOZOLOMIDE
     Indication: GLIOBLASTOMA
     Dosage: 310 MILLIGRAM, QD FOR 5 DAYS IN 6 X 28 DAY CYCLES
     Route: 048
     Dates: start: 20190920, end: 20190924
  2. IPILIMUMAB [Suspect]
     Active Substance: IPILIMUMAB
     Indication: GLIOBLASTOMA
     Dosage: 306 MILLIGRAM,EVERY 3 WEEKS FOR 4 DOSES
     Route: 042
     Dates: start: 20191003, end: 20191003

REACTIONS (1)
  - Type IV hypersensitivity reaction [Recovering/Resolving]

NARRATIVE: CASE EVENT DATE: 20191012
